FAERS Safety Report 13053715 (Version 1)
Quarter: 2016Q4

REPORT INFORMATION
  Report Type: Spontaneous
  Country: US (occurrence: US)
  Receive Date: 20161221
  Receipt Date: 20161221
  Transmission Date: 20170207
  Serious: No
  Sender: FDA-Public Use
  Company Number: None

PATIENT
  Age: 11 Year
  Sex: Female

DRUGS (1)
  1. METHOTREXATE SDV 25MG/ML [Suspect]
     Active Substance: METHOTREXATE
     Indication: JUVENILE IDIOPATHIC ARTHRITIS

REACTIONS (3)
  - Post procedural complication [None]
  - Lethargy [None]
  - Pyrexia [None]

NARRATIVE: CASE EVENT DATE: 20160902
